FAERS Safety Report 17724803 (Version 5)
Quarter: 2020Q3

REPORT INFORMATION
  Report Type: Spontaneous
  Country: PL (occurrence: PL)
  Receive Date: 20200429
  Receipt Date: 20200707
  Transmission Date: 20201102
  Serious: Yes (Hospitalization, Other)
  Sender: FDA-Public Use
  Company Number: NVSC2020PL111463

PATIENT
  Age: 56 Year
  Sex: Female

DRUGS (21)
  1. CLARITHROMYCIN. [Suspect]
     Active Substance: CLARITHROMYCIN
     Indication: PNEUMONIA MYCOPLASMAL
     Dosage: UNK
     Route: 042
  2. CEFUROXIME. [Concomitant]
     Active Substance: CEFUROXIME
     Indication: OTITIS MEDIA ACUTE
     Dosage: UNK
     Route: 065
  3. KETOCONAZOLE. [Concomitant]
     Active Substance: KETOCONAZOLE
     Indication: OTITIS MEDIA ACUTE
     Dosage: UNK
     Route: 042
  4. POTASSIUM CHLORIDE. [Suspect]
     Active Substance: POTASSIUM CHLORIDE
     Indication: HYPOKALAEMIA
  5. HYDROXYETHYL STARCH [Suspect]
     Active Substance: HETASTARCH
     Indication: PNEUMONIA MYCOPLASMAL
     Dosage: UNK
     Route: 065
  6. FUROSEMIDE. [Suspect]
     Active Substance: FUROSEMIDE
     Indication: HYPOKALAEMIA
  7. METHYLPREDNISOLONE. [Suspect]
     Active Substance: METHYLPREDNISOLONE
     Indication: PNEUMONIA MYCOPLASMAL
     Dosage: UNK
     Route: 042
  8. PENTOXIFYLLINE. [Suspect]
     Active Substance: PENTOXIFYLLINE
     Indication: PNEUMONIA MYCOPLASMAL
     Dosage: UNK
     Route: 065
  9. COCARBOXYLASE [Concomitant]
     Active Substance: COCARBOXYLASE
     Indication: OTITIS MEDIA ACUTE
     Dosage: UNK
     Route: 065
  10. COCARBOXYLASE [Concomitant]
     Active Substance: COCARBOXYLASE
     Indication: DEAFNESS BILATERAL
  11. DEXAMETHASONE. [Concomitant]
     Active Substance: DEXAMETHASONE
     Indication: OTITIS MEDIA ACUTE
     Dosage: UNK
     Route: 065
  12. POTASSIUM CHLORIDE. [Suspect]
     Active Substance: POTASSIUM CHLORIDE
     Indication: OEDEMA PERIPHERAL
     Dosage: UNK
     Route: 065
  13. FUROSEMIDE. [Suspect]
     Active Substance: FUROSEMIDE
     Indication: OEDEMA PERIPHERAL
     Dosage: UNK
     Route: 065
  14. ENOXAPARIN [Suspect]
     Active Substance: ENOXAPARIN
     Indication: OEDEMA PERIPHERAL
     Dosage: UNK
     Route: 065
  15. AMOXICILLIN. [Suspect]
     Active Substance: AMOXICILLIN
     Indication: UPPER RESPIRATORY TRACT INFECTION
     Dosage: UNK
     Route: 065
  16. CEFTRIAXONE. [Suspect]
     Active Substance: CEFTRIAXONE
     Indication: PRODUCT USED FOR UNKNOWN INDICATION
     Dosage: UNK
     Route: 042
  17. LIGNOCAINE [Suspect]
     Active Substance: LIDOCAINE HYDROCHLORIDE
     Indication: OTITIS MEDIA ACUTE
     Dosage: UNK
     Route: 065
  18. ENOXAPARIN [Suspect]
     Active Substance: ENOXAPARIN
     Indication: HYPOKALAEMIA
  19. OXYGEN. [Concomitant]
     Active Substance: OXYGEN
     Indication: PRODUCT USED FOR UNKNOWN INDICATION
     Dosage: 2.5 ATA, 3 X 20MIN, 15 SESSIONS
     Route: 065
  20. CIPROFLOXACIN. [Concomitant]
     Active Substance: CIPROFLOXACIN
     Indication: PNEUMONIA
     Dosage: UNK
     Route: 042
  21. OMEPRAZOLE. [Suspect]
     Active Substance: OMEPRAZOLE
     Indication: PNEUMONIA MYCOPLASMAL
     Dosage: UNK
     Route: 042

REACTIONS (12)
  - Drug ineffective [Recovering/Resolving]
  - Deafness bilateral [Recovering/Resolving]
  - Otitis media acute [Unknown]
  - Dizziness [Unknown]
  - Electrolyte imbalance [Unknown]
  - Vertigo [Unknown]
  - Pneumonia [Unknown]
  - Off label use [Unknown]
  - Oedema peripheral [Unknown]
  - Hypokalaemia [Unknown]
  - Pneumonia mycoplasmal [Not Recovered/Not Resolved]
  - Product use in unapproved indication [Unknown]
